FAERS Safety Report 6581907-6 (Version None)
Quarter: 2010Q1

REPORT INFORMATION
  Report Type: 
  Country: None (occurrence: None)
  Receive Date: 20100212
  Receipt Date: 20100212
  Transmission Date: 20100710
  Serious: No
  Sender: FDA-Public Use
  Company Number: None

PATIENT
  Age: 75 Year
  Sex: Male
  Weight: 70 kg

DRUGS (1)
  1. LANTHANUM [Suspect]
     Indication: HYPERCALCAEMIA
     Dosage: 750 MG TID PO
     Route: 048
     Dates: start: 20091004, end: 20091029

REACTIONS (3)
  - DYSPHAGIA [None]
  - ORAL DISCOMFORT [None]
  - PRODUCT QUALITY ISSUE [None]
